FAERS Safety Report 8609391-9 (Version None)
Quarter: 2012Q3

REPORT INFORMATION
  Report Type: 
  Country: None (occurrence: None)
  Receive Date: 20120821
  Receipt Date: 20120809
  Transmission Date: 20120928
  Serious: Yes (Hospitalization)
  Sender: FDA-Public Use
  Company Number: CA-BRISTOL-MYERS SQUIBB COMPANY-16510356

PATIENT
  Age: 84 Year
  Sex: Female

DRUGS (4)
  1. ORENCIA [Suspect]
     Indication: RHEUMATOID ARTHRITIS
     Dosage: LAST INFUSION ON 28-MAR-2012,28APR12 INF:49
     Route: 042
     Dates: start: 20070503
  2. PLAQUENIL [Concomitant]
  3. ARAVA [Concomitant]
  4. ATENOLOL [Concomitant]

REACTIONS (2)
  - TRANSIENT ISCHAEMIC ATTACK [None]
  - HERPES ZOSTER [None]
